FAERS Safety Report 25410290 (Version 2)
Quarter: 2025Q3

REPORT INFORMATION
  Report Type: Spontaneous
  Country: US (occurrence: US)
  Receive Date: 20250608
  Receipt Date: 20250716
  Transmission Date: 20251020
  Serious: No
  Sender: SANOFI AVENTIS
  Company Number: US-SA-2025SA160053

PATIENT
  Age: 62 Year
  Sex: Female

DRUGS (3)
  1. KEVZARA [Suspect]
     Active Substance: SARILUMAB
     Indication: Rheumatoid arthritis
     Dosage: 200 MG, QOW
     Route: 058
     Dates: start: 201809
  2. EMGALITY [Concomitant]
     Active Substance: GALCANEZUMAB-GNLM
  3. RINVOQ [Concomitant]
     Active Substance: UPADACITINIB

REACTIONS (4)
  - Loss of personal independence in daily activities [Unknown]
  - Gait inability [Unknown]
  - Pain [Unknown]
  - Drug ineffective [Unknown]
